FAERS Safety Report 7989317-1 (Version None)
Quarter: 2011Q4

REPORT INFORMATION
  Report Type: 
  Country: None (occurrence: None)
  Receive Date: 20111219
  Receipt Date: 20111215
  Transmission Date: 20120403
  Serious: Yes (Hospitalization)
  Sender: FDA-Public Use
  Company Number: DE-AMGEN-DEUCT2011060271

PATIENT
  Age: 63 Year
  Sex: Male

DRUGS (5)
  1. ASPIRIN [Concomitant]
  2. DIGITOXIN TAB [Concomitant]
  3. ALFACALCIDOL [Concomitant]
     Dosage: 25 MUG, QD
  4. CINACALCET HYDROCHLORIDE [Suspect]
     Indication: HYPERPARATHYROIDISM SECONDARY
     Dosage: UNK
     Route: 048
     Dates: start: 20070521
  5. DIGOXIN [Concomitant]

REACTIONS (2)
  - SHUNT THROMBOSIS [None]
  - SEPTIC SHOCK [None]
